FAERS Safety Report 9227564 (Version 1)
Quarter: 2013Q2

REPORT INFORMATION
  Report Type: Report from Study
  Country: ID (occurrence: ID)
  Receive Date: 20130412
  Receipt Date: 20130412
  Transmission Date: 20140414
  Serious: Yes (Other)
  Sender: FDA-Public Use
  Company Number: ID-ASTELLAS-2013US003898

PATIENT
  Age: 50 Year
  Sex: Female

DRUGS (1)
  1. ERLOTINIB TABLET [Suspect]
     Indication: NON-SMALL CELL LUNG CANCER
     Dosage: 150 MG, UID/QD
     Route: 048
     Dates: start: 20130123

REACTIONS (3)
  - Pleural effusion [Not Recovered/Not Resolved]
  - Decreased appetite [Unknown]
  - Nausea [Unknown]
